FAERS Safety Report 19760803 (Version 1)
Quarter: 2021Q3

REPORT INFORMATION
  Report Type: Spontaneous
  Country: US (occurrence: US)
  Receive Date: 20210825
  Receipt Date: 20210825
  Transmission Date: 20211014
  Serious: No
  Sender: FDA-Public Use
  Company Number: None

PATIENT
  Age: 19 Year
  Sex: Female

DRUGS (1)
  1. TRIENTINE HCL 250MG [Suspect]
     Active Substance: TRIENTINE HYDROCHLORIDE
     Route: 048

REACTIONS (2)
  - Product substitution issue [None]
  - Product storage error [None]

NARRATIVE: CASE EVENT DATE: 20210811
